FAERS Safety Report 20302409 (Version 2)
Quarter: 2022Q1

REPORT INFORMATION
  Report Type: Spontaneous
  Country: CA (occurrence: CA)
  Receive Date: 20220106
  Receipt Date: 20220309
  Transmission Date: 20220423
  Serious: Yes (Hospitalization, Other)
  Sender: FDA-Public Use
  Company Number: CA-SAMSUNG BIOEPIS-SB-2021-30736

PATIENT
  Age: 44 Year
  Sex: Female
  Weight: 53 kg

DRUGS (7)
  1. INFLIXIMAB [Suspect]
     Active Substance: INFLIXIMAB
     Indication: Crohn^s disease
     Route: 042
  2. AZATHIOPRINE [Suspect]
     Active Substance: AZATHIOPRINE
     Indication: Product used for unknown indication
     Route: 048
  3. DESOXIMETASONE [Suspect]
     Active Substance: DESOXIMETASONE
     Indication: Product used for unknown indication
     Route: 065
  4. DESOXIMETASONE [Suspect]
     Active Substance: DESOXIMETASONE
     Route: 065
  5. PREDNISONE [Suspect]
     Active Substance: PREDNISONE
     Indication: Product used for unknown indication
     Route: 065
  6. CORTEF [Concomitant]
     Active Substance: HYDROCORTISONE
     Indication: Product used for unknown indication
     Route: 065
  7. LORAZEPAM [Concomitant]
     Active Substance: LORAZEPAM
     Indication: Product used for unknown indication
     Dosage: UNKNOWN
     Route: 065

REACTIONS (22)
  - Abdominal distension [Not Recovered/Not Resolved]
  - Anorectal discomfort [Not Recovered/Not Resolved]
  - Arthralgia [Not Recovered/Not Resolved]
  - Blood pressure fluctuation [Not Recovered/Not Resolved]
  - Constipation [Not Recovered/Not Resolved]
  - Drug hypersensitivity [Not Recovered/Not Resolved]
  - Drug interaction [Not Recovered/Not Resolved]
  - Haematochezia [Not Recovered/Not Resolved]
  - Headache [Not Recovered/Not Resolved]
  - Heart rate decreased [Not Recovered/Not Resolved]
  - Muscular weakness [Not Recovered/Not Resolved]
  - Myalgia [Not Recovered/Not Resolved]
  - Oral mucosal eruption [Not Recovered/Not Resolved]
  - Pain [Not Recovered/Not Resolved]
  - Polymenorrhoea [Not Recovered/Not Resolved]
  - Urinary incontinence [Not Recovered/Not Resolved]
  - Anxiety [Not Recovered/Not Resolved]
  - Crying [Not Recovered/Not Resolved]
  - Faeces hard [Not Recovered/Not Resolved]
  - Proctalgia [Not Recovered/Not Resolved]
  - Weight increased [Not Recovered/Not Resolved]
  - Incorrect dose administered [Not Recovered/Not Resolved]
